FAERS Safety Report 9457467 (Version 1)
Quarter: 2013Q3

REPORT INFORMATION
  Report Type: Spontaneous
  Country: CA (occurrence: CA)
  Receive Date: 20130814
  Receipt Date: 20130814
  Transmission Date: 20140515
  Serious: Yes (Other)
  Sender: FDA-Public Use
  Company Number: CA-JNJFOC-20130800312

PATIENT
  Sex: Female
  Weight: 102.06 kg

DRUGS (4)
  1. NICODERM STEP 1 CLEAR [Suspect]
     Indication: SMOKING CESSATION THERAPY
     Dosage: TWO 21 MG PATCHES
     Route: 061
  2. NICORETTE INHALER [Suspect]
     Indication: NICOTINE DEPENDENCE
     Dosage: 2 TO 3 INHALER CARTRIDGES A DAY
     Route: 055
     Dates: start: 20130716
  3. COVERSYL [Concomitant]
     Indication: HYPERTENSION
     Dosage: 3 YEARS
     Route: 065
  4. THYROXIN [Concomitant]
     Indication: HYPOTHYROIDISM
     Dosage: 20 YEARS
     Route: 065

REACTIONS (2)
  - Drug prescribing error [Unknown]
  - Overdose [Unknown]
